FAERS Safety Report 18500571 (Version 1)
Quarter: 2020Q4

REPORT INFORMATION
  Report Type: Spontaneous
  Country: US (occurrence: US)
  Receive Date: 20201112
  Receipt Date: 20201112
  Transmission Date: 20210114
  Serious: Yes (Life-Threatening, Other)
  Sender: FDA-Public Use
  Company Number: None

PATIENT
  Age: 46 Year
  Sex: Female
  Weight: 77.11 kg

DRUGS (7)
  1. VITAMIN B12 [Concomitant]
     Active Substance: CYANOCOBALAMIN
  2. ZOLOFT [Concomitant]
     Active Substance: SERTRALINE HYDROCHLORIDE
  3. MIRENA [Suspect]
     Active Substance: LEVONORGESTREL
  4. MOTEGRITY (DISCONTINUED) [Concomitant]
  5. XANAX PRN [Concomitant]
  6. VENTOLIN [Concomitant]
     Active Substance: ALBUTEROL SULFATE
  7. VITAMIN D [Concomitant]
     Active Substance: VITAMIN D NOS

REACTIONS (9)
  - Crying [None]
  - Panic reaction [None]
  - Violence-related symptom [None]
  - Depressed mood [None]
  - Suicidal ideation [None]
  - Anxiety [None]
  - Depression [None]
  - Self-injurious ideation [None]
  - Fear [None]

NARRATIVE: CASE EVENT DATE: 20200913
